FAERS Safety Report 5006839-6 (Version None)
Quarter: 2006Q2

REPORT INFORMATION
  Report Type: 
  Country: None (occurrence: None)
  Receive Date: 20060516
  Receipt Date: 20060503
  Transmission Date: 20061013
  Serious: Yes (Hospitalization)
  Sender: FDA-Public Use
  Company Number: 2005035173

PATIENT
  Age: 55 Year
  Sex: Female

DRUGS (7)
  1. EPIRUBICIN [Suspect]
     Indication: BREAST CANCER
     Dosage: 160 MG (SINGLE DOSE), ORAL
     Route: 048
     Dates: start: 20041228, end: 20041228
  2. DEXRAZOXANE [Suspect]
     Indication: BREAST CANCER
     Dosage: 1500 MG (SINGLE DOSE), INTRAVENOUS
     Route: 042
     Dates: start: 20041228, end: 20041228
  3. FLUOROURACIL [Suspect]
     Indication: BREAST CANCER
     Dosage: 800 MG (SINGLE DOSE), INTRAVENOUS
     Route: 042
     Dates: start: 20041228, end: 20041228
  4. CYCLOPHOSPHAMIDE [Suspect]
     Indication: BREAST CANCER
     Dosage: 800 MG (SINGLE DOSE), INTRAVENOUS
     Route: 042
     Dates: start: 20041228, end: 20041228
  5. KYTRIL [Concomitant]
  6. ZOFRAN [Concomitant]
  7. CORTICOSTEROIDS (CORTICOSTEROIDS) [Concomitant]

REACTIONS (15)
  - ALANINE AMINOTRANSFERASE INCREASED [None]
  - ASPARTATE AMINOTRANSFERASE INCREASED [None]
  - BRAIN SCAN ABNORMAL [None]
  - COMA [None]
  - DEPRESSED LEVEL OF CONSCIOUSNESS [None]
  - DRUG TOXICITY [None]
  - HAEMOGLOBIN DECREASED [None]
  - HYPOTONIA [None]
  - LUNG DISORDER [None]
  - NEUTROPENIA [None]
  - PLATELET COUNT DECREASED [None]
  - PYREXIA [None]
  - RESPIRATORY DISTRESS [None]
  - SOMNOLENCE [None]
  - WHITE BLOOD CELL COUNT DECREASED [None]
